FAERS Safety Report 9925260 (Version 1)
Quarter: 2014Q1

REPORT INFORMATION
  Report Type: Spontaneous
  Country: US (occurrence: None)
  Receive Date: 20140225
  Receipt Date: 20140225
  Transmission Date: 20141002
  Serious: Yes (Other)
  Sender: FDA-Public Use
  Company Number: None

PATIENT
  Sex: Male
  Weight: 80.29 kg

DRUGS (1)
  1. ESCITALOPRAM [Suspect]
     Indication: ANXIETY
     Route: 048
     Dates: start: 201302

REACTIONS (2)
  - Therapeutic response decreased [None]
  - Product substitution issue [None]
